FAERS Safety Report 9393832 (Version 1)
Quarter: 2013Q3

REPORT INFORMATION
  Report Type: Spontaneous
  Country: HK (occurrence: HK)
  Receive Date: 20130710
  Receipt Date: 20130710
  Transmission Date: 20140515
  Serious: Yes (Other)
  Sender: FDA-Public Use
  Company Number: HK-PFIZER INC-2013200108

PATIENT
  Age: 15 Year
  Sex: Male

DRUGS (2)
  1. PHENYTOIN [Suspect]
     Indication: CONVULSION
     Dosage: UNK
     Route: 042
  2. CLOBAZAM [Concomitant]
     Indication: GRAND MAL CONVULSION
     Dosage: UNK

REACTIONS (9)
  - Drug reaction with eosinophilia and systemic symptoms [Unknown]
  - Lip swelling [Unknown]
  - Oedema mucosal [Recovering/Resolving]
  - Rash erythematous [Recovering/Resolving]
  - Pyrexia [Recovering/Resolving]
  - Neutropenia [Recovering/Resolving]
  - Alanine aminotransferase increased [Recovering/Resolving]
  - Aspartate aminotransferase increased [Recovering/Resolving]
  - Gamma-glutamyltransferase increased [Recovering/Resolving]
